FAERS Safety Report 16369658 (Version 1)
Quarter: 2019Q2

REPORT INFORMATION
  Report Type: Spontaneous
  Country: US (occurrence: US)
  Receive Date: 20190530
  Receipt Date: 20190530
  Transmission Date: 20190711
  Serious: Yes (Disabling, Other)
  Sender: FDA-Public Use
  Company Number: PHHY2019US117939

PATIENT
  Age: 69 Year
  Sex: Male

DRUGS (1)
  1. ZOLEDRONATE [Suspect]
     Active Substance: ZOLEDRONIC ACID
     Indication: PLASMA CELL MYELOMA
     Dosage: Q3MO FOR 4 YEARS
     Route: 041

REACTIONS (9)
  - Pain in jaw [Recovering/Resolving]
  - Facial pain [Recovered/Resolved]
  - Osteomyelitis [Recovering/Resolving]
  - Inappropriate schedule of product administration [Unknown]
  - Oroantral fistula [Recovering/Resolving]
  - Blindness [Not Recovered/Not Resolved]
  - Actinomycosis [Recovering/Resolving]
  - Osteonecrosis of jaw [Recovering/Resolving]
  - Headache [Recovered/Resolved]
